FAERS Safety Report 25168395 (Version 1)
Quarter: 2025Q2

REPORT INFORMATION
  Report Type: Spontaneous
  Country: AS (occurrence: WS)
  Receive Date: 20250407
  Receipt Date: 20250407
  Transmission Date: 20250716
  Serious: No
  Sender: MERCK SHARP AND DOHME
  Company Number: WS-009507513-2258711

PATIENT
  Age: 50 Year
  Sex: Female

DRUGS (3)
  1. IVERMECTIN [Suspect]
     Active Substance: IVERMECTIN
     Indication: Filariasis lymphatic
     Dates: start: 2019
  2. DIETHYLCARBAMAZINE [Concomitant]
     Active Substance: DIETHYLCARBAMAZINE
     Indication: Filariasis lymphatic
     Dates: start: 2019
  3. ALBENDAZOLE [Concomitant]
     Active Substance: ALBENDAZOLE
     Indication: Filariasis lymphatic
     Dates: start: 2019

REACTIONS (1)
  - Product use in unapproved indication [Unknown]
